FAERS Safety Report 6770267-3 (Version None)
Quarter: 2010Q2

REPORT INFORMATION
  Report Type: 
  Country: None (occurrence: None)
  Receive Date: 20100615
  Receipt Date: 20100608
  Transmission Date: 20101027
  Serious: Yes (Other)
  Sender: FDA-Public Use
  Company Number: FR-BRISTOL-MYERS SQUIBB COMPANY-15065485

PATIENT
  Age: 48 Year
  Sex: Female

DRUGS (5)
  1. ORENCIA [Suspect]
     Indication: PSORIATIC ARTHROPATHY
     Dosage: STOP ON JUL-AUG09,RESTARTED ON SEP09,STOPPED ON JAN10 250 MG FROM 2005 TO THE BEGINNING OF 2008.
     Dates: start: 20081101, end: 20100101
  2. BI-PROFENID [Concomitant]
  3. NEXIUM [Concomitant]
  4. THERALENE [Concomitant]
  5. RIVOTRIL [Concomitant]

REACTIONS (2)
  - DRUG INEFFECTIVE [None]
  - EOSINOPHILIA [None]
